FAERS Safety Report 10227130 (Version 11)
Quarter: 2016Q3

REPORT INFORMATION
  Report Type: Spontaneous
  Country: CA (occurrence: CA)
  Receive Date: 20140610
  Receipt Date: 20160826
  Transmission Date: 20161109
  Serious: Yes (Other)
  Sender: FDA-Public Use
  Company Number: CA-ROCHE-1326762

PATIENT
  Age: 59 Year
  Sex: Female
  Weight: 62 kg

DRUGS (12)
  1. XOLAIR [Suspect]
     Active Substance: OMALIZUMAB
     Dosage: UNK
     Route: 058
     Dates: start: 20130225
  2. XOLAIR [Suspect]
     Active Substance: OMALIZUMAB
     Dosage: UNK
     Route: 058
     Dates: start: 20140702
  3. XOLAIR [Suspect]
     Active Substance: OMALIZUMAB
     Dosage: UNK
     Route: 058
     Dates: start: 20160810
  4. ADVAIR HFA [Concomitant]
     Active Substance: FLUTICASONE PROPIONATE\SALMETEROL XINAFOATE
     Indication: PRODUCT USED FOR UNKNOWN INDICATION
     Route: 065
  5. SINGULAIR [Concomitant]
     Active Substance: MONTELUKAST SODIUM
     Indication: PRODUCT USED FOR UNKNOWN INDICATION
     Route: 065
  6. XOLAIR [Suspect]
     Active Substance: OMALIZUMAB
     Dosage: UNK
     Route: 058
     Dates: start: 20130128
  7. XOLAIR [Suspect]
     Active Substance: OMALIZUMAB
     Dosage: UNK
     Route: 058
     Dates: start: 20150317
  8. XOLAIR [Suspect]
     Active Substance: OMALIZUMAB
     Indication: ASTHMA
     Dosage: 300 MG EVERY 4 WEEKS
     Route: 058
     Dates: start: 20121203
  9. XOLAIR [Suspect]
     Active Substance: OMALIZUMAB
     Dosage: UNK
     Route: 058
     Dates: start: 20130911
  10. PREDNISONE. [Concomitant]
     Active Substance: PREDNISONE
     Dosage: EVEVRY TWO DAY TILL OFF
     Route: 065
  11. XOLAIR [Suspect]
     Active Substance: OMALIZUMAB
     Dosage: UNK
     Route: 058
     Dates: start: 20150512
  12. PREDNISONE. [Concomitant]
     Active Substance: PREDNISONE
     Indication: ASTHMA
     Dosage: FOR EVERY 5 DAYS, TAPERED DOWN BY 5 MG EVERY 2 DAYS TILL OFF.
     Route: 065

REACTIONS (15)
  - Nasopharyngitis [Unknown]
  - Asthma [Unknown]
  - Blood pressure increased [Unknown]
  - Bronchitis [Unknown]
  - Rales [Unknown]
  - Lower limb fracture [Unknown]
  - Chronic obstructive pulmonary disease [Unknown]
  - Sputum discoloured [Unknown]
  - Malaise [Unknown]
  - Weight decreased [Unknown]
  - Fall [Unknown]
  - Chest pain [Unknown]
  - Cough [Unknown]
  - Respiratory disorder [Unknown]
  - Oropharyngeal pain [Unknown]

NARRATIVE: CASE EVENT DATE: 20130225
